FAERS Safety Report 7501523-9 (Version None)
Quarter: 2011Q2

REPORT INFORMATION
  Report Type: 
  Country: None (occurrence: None)
  Receive Date: 20110524
  Receipt Date: 20110512
  Transmission Date: 20111010
  Serious: Yes (Hospitalization, Other)
  Sender: FDA-Public Use
  Company Number: PHHY2011US41636

PATIENT
  Sex: Female

DRUGS (9)
  1. ZOLPIDEM [Concomitant]
  2. FENOFIBRATE [Concomitant]
  3. LEVOTHYROXINE SODIUM [Concomitant]
  4. AMOXICILLIN [Concomitant]
  5. TRAMADOL HCL [Concomitant]
  6. MYFORTIC [Suspect]
     Dosage: 180 MG, QID
  7. CITALOPRAM HYDROBROMIDE [Concomitant]
  8. PROGRAF [Concomitant]
     Dosage: 1 MG, QID
  9. CLONAZEPAM [Concomitant]
     Dosage: 2 MG

REACTIONS (3)
  - RENAL FAILURE [None]
  - BLOOD CREATININE INCREASED [None]
  - VISUAL IMPAIRMENT [None]
